FAERS Safety Report 5464264-8 (Version None)
Quarter: 2007Q3

REPORT INFORMATION
  Report Type: 
  Country: None (occurrence: None)
  Receive Date: 20070921
  Receipt Date: 20070917
  Transmission Date: 20080115
  Serious: Yes (Other)
  Sender: FDA-Public Use
  Company Number: A0683097A

PATIENT
  Age: 50 Year
  Sex: Female
  Weight: 68.2 kg

DRUGS (5)
  1. FLOLAN [Suspect]
     Indication: PULMONARY HYPERTENSION
     Dosage: 47NGKM UNKNOWN
     Route: 042
     Dates: start: 20010201
  2. WARFARIN SODIUM [Concomitant]
  3. FUROSEMIDE [Concomitant]
  4. POTASSIUM CHLORIDE [Concomitant]
  5. SPIRONOLACTONE [Concomitant]

REACTIONS (2)
  - HYPERTHYROIDISM [None]
  - PANCREATITIS [None]
